FAERS Safety Report 7353886-5 (Version None)
Quarter: 2011Q1

REPORT INFORMATION
  Report Type: 
  Country: None (occurrence: None)
  Receive Date: 20110315
  Receipt Date: 20101220
  Transmission Date: 20110831
  Serious: No
  Sender: FDA-Public Use
  Company Number: US-BAYER-2011-009975

PATIENT
  Sex: Male
  Weight: 86 kg

DRUGS (12)
  1. ALEVE (CAPLET) [Suspect]
     Indication: ARTHRITIS
  2. ENALAPRIL MALEATE [Concomitant]
  3. PROMETHAZINE HYDROCHLORIDE [Concomitant]
  4. TRIAMTERENE [Concomitant]
  5. UNKNOWN [Concomitant]
  6. MORPHINE [Concomitant]
  7. HYDROXYZINE HCL [Concomitant]
  8. OXYCODONE [Concomitant]
  9. ALEVE [Suspect]
     Indication: ARTHRITIS
  10. CHLORDIAZEPOXIDE [Concomitant]
  11. HYDROCHLOROTHIAZIDE [Concomitant]
  12. SIMVASTATIN [Concomitant]

REACTIONS (1)
  - BLOOD PRESSURE INCREASED [None]
